FAERS Safety Report 12752741 (Version 1)
Quarter: 2016Q3

REPORT INFORMATION
  Report Type: Spontaneous
  Country: FR (occurrence: FR)
  Receive Date: 20160916
  Receipt Date: 20160916
  Transmission Date: 20161109
  Serious: Yes (Other)
  Sender: FDA-Public Use
  Company Number: FR-CIPLA LTD.-2016FR18128

PATIENT

DRUGS (20)
  1. RITONAVIR. [Suspect]
     Active Substance: RITONAVIR
     Indication: HEPATITIS B
  2. DARUNAVIR [Suspect]
     Active Substance: DARUNAVIR
     Indication: HIV INFECTION
     Dosage: UNK
     Route: 065
  3. ADEFOVIR DIPIVOXIL. [Suspect]
     Active Substance: ADEFOVIR DIPIVOXIL
     Indication: HIV INFECTION
     Dosage: 10 MG, PER DAY
     Route: 065
  4. RITONAVIR. [Suspect]
     Active Substance: RITONAVIR
     Indication: HIV INFECTION
     Dosage: UNK
     Route: 065
  5. ETRAVIRINE [Suspect]
     Active Substance: ETRAVIRINE
     Indication: HIV INFECTION
     Dosage: UNK
     Route: 065
  6. NORVIR [Suspect]
     Active Substance: RITONAVIR
     Indication: HEPATITIS B
  7. ATAZANAVIR [Suspect]
     Active Substance: ATAZANAVIR
     Indication: HIV INFECTION
     Dosage: UNK
     Route: 065
  8. TELBIVUDINE [Suspect]
     Active Substance: TELBIVUDINE
     Indication: HIV INFECTION
     Dosage: UNK
     Route: 065
  9. DARUNAVIR [Suspect]
     Active Substance: DARUNAVIR
     Indication: HEPATITIS B
  10. TELBIVUDINE [Suspect]
     Active Substance: TELBIVUDINE
     Indication: HEPATITIS B
  11. TENOFOVIR [Suspect]
     Active Substance: TENOFOVIR
     Indication: HEPATITIS B
  12. ENTECAVIR. [Suspect]
     Active Substance: ENTECAVIR
     Indication: HIV INFECTION
     Dosage: UNK
     Route: 065
  13. ADEFOVIR DIPIVOXIL. [Suspect]
     Active Substance: ADEFOVIR DIPIVOXIL
     Indication: HEPATITIS B
  14. ETRAVIRINE [Suspect]
     Active Substance: ETRAVIRINE
     Indication: HEPATITIS B
  15. NORVIR [Suspect]
     Active Substance: RITONAVIR
     Indication: HIV INFECTION
     Dosage: UNK
     Route: 065
  16. TENOFOVIR [Suspect]
     Active Substance: TENOFOVIR
     Indication: HIV INFECTION
     Dosage: UNK
     Route: 065
  17. LAMIVUDINE. [Suspect]
     Active Substance: LAMIVUDINE
     Indication: HIV INFECTION
     Dosage: UNK
     Route: 065
  18. LAMIVUDINE. [Suspect]
     Active Substance: LAMIVUDINE
     Indication: HEPATITIS B
  19. ENTECAVIR. [Suspect]
     Active Substance: ENTECAVIR
     Indication: HEPATITIS B
  20. ATAZANAVIR [Suspect]
     Active Substance: ATAZANAVIR
     Indication: HEPATITIS B

REACTIONS (4)
  - Drug resistance [Unknown]
  - Fanconi syndrome [Recovered/Resolved]
  - Osteonecrosis [Unknown]
  - Osteoporosis [Unknown]
